FAERS Safety Report 10012547 (Version 1)
Quarter: 2014Q1

REPORT INFORMATION
  Report Type: Spontaneous
  Country: GB (occurrence: GB)
  Receive Date: 20140314
  Receipt Date: 20140314
  Transmission Date: 20141002
  Serious: Yes (Life-Threatening)
  Sender: FDA-Public Use
  Company Number: GB-B.I. PHARMACEUTICALS,INC./RIDGEFIELD-2014-BI-10755UK

PATIENT
  Age: 66 Year
  Sex: Female
  Weight: 69.85 kg

DRUGS (4)
  1. SPIRIVA [Suspect]
     Indication: PRODUCT USED FOR UNKNOWN INDICATION
     Route: 065
     Dates: start: 20140131
  2. DOXYCYCLINE [Concomitant]
     Route: 065
     Dates: start: 20140131, end: 20140207
  3. OMEPRAZOLE [Concomitant]
     Route: 065
     Dates: start: 20131111, end: 20131209
  4. SALBUTAMOL [Concomitant]
     Route: 065
     Dates: start: 20131111, end: 20131209

REACTIONS (4)
  - Dyspnoea [Recovered/Resolved]
  - Swelling face [Recovered/Resolved]
  - Local swelling [Recovered/Resolved]
  - Oedema mouth [Recovered/Resolved]
